FAERS Safety Report 12106069 (Version 2)
Quarter: 2016Q1

REPORT INFORMATION
  Report Type: Spontaneous
  Country: US (occurrence: US)
  Receive Date: 20160223
  Receipt Date: 20160324
  Transmission Date: 20160526
  Serious: Yes (Other)
  Sender: FDA-Public Use
  Company Number: US-PFIZER INC-2016106208

PATIENT
  Age: 75 Year
  Sex: Female

DRUGS (1)
  1. ZOLOFT [Suspect]
     Active Substance: SERTRALINE HYDROCHLORIDE
     Dosage: UNK (DOSE 1/4 TAB)
     Dates: start: 2000, end: 2004

REACTIONS (3)
  - Headache [Unknown]
  - Facial nerve disorder [Unknown]
  - Stupor [Unknown]
